FAERS Safety Report 6325992-5 (Version None)
Quarter: 2009Q3

REPORT INFORMATION
  Report Type: 
  Country: None (occurrence: None)
  Receive Date: 20090824
  Receipt Date: 20090821
  Transmission Date: 20100115
  Serious: Yes (Death)
  Sender: FDA-Public Use
  Company Number: US-ABBOTT-09P-163-0592468-00

PATIENT
  Sex: Male

DRUGS (2)
  1. HUMIRA [Suspect]
     Indication: PSORIASIS
     Route: 058
     Dates: end: 20090420
  2. LEXAPRO [Concomitant]
     Indication: HYPERTENSION
     Dates: end: 20090420

REACTIONS (2)
  - ROAD TRAFFIC ACCIDENT [None]
  - TRAUMATIC BRAIN INJURY [None]
